FAERS Safety Report 5987779-2 (Version None)
Quarter: 2008Q4

REPORT INFORMATION
  Report Type: 
  Country: None (occurrence: None)
  Receive Date: 20081209
  Receipt Date: 20080229
  Transmission Date: 20090506
  Serious: No
  Sender: FDA-Public Use
  Company Number: US-BAYER-200815930NA

PATIENT
  Age: 56 Year
  Sex: Female
  Weight: 54 kg

DRUGS (2)
  1. CLIMARA PRO [Suspect]
     Indication: HORMONE REPLACEMENT THERAPY
     Route: 062
  2. ACID PROTON INHIBITOR [Concomitant]
     Indication: UNEVALUABLE EVENT

REACTIONS (1)
  - APPLICATION SITE RASH [None]
